FAERS Safety Report 23454063 (Version 3)
Quarter: 2025Q1

REPORT INFORMATION
  Report Type: Report from Study
  Country: US (occurrence: US)
  Receive Date: 20240130
  Receipt Date: 20250205
  Transmission Date: 20250408
  Serious: Yes (Other)
  Sender: ABBVIE
  Company Number: US-ABBVIE-5603517

PATIENT
  Age: 45 Year
  Sex: Female

DRUGS (3)
  1. SKYRIZI [Suspect]
     Active Substance: RISANKIZUMAB-RZAA
     Indication: Crohn^s disease
     Dosage: FORM STRENGTH 360 MILLIGRAM
     Route: 058
     Dates: start: 20230301
  2. SKYRIZI [Suspect]
     Active Substance: RISANKIZUMAB-RZAA
     Dosage: FORM STRENGTH 360 MILLIGRAM
     Route: 058
     Dates: start: 2023, end: 20231228
  3. SKYRIZI [Suspect]
     Active Substance: RISANKIZUMAB-RZAA
     Indication: Crohn^s disease
     Dosage: LAST ADMIN DATE:2023? FORM STRENGTH: 600 MILLIGRAM
     Route: 042
     Dates: start: 20231003

REACTIONS (8)
  - Ostomy bag placement [Unknown]
  - Therapeutic product effect delayed [Unknown]
  - Clostridium difficile infection [Unknown]
  - Device issue [Unknown]
  - Eczema [Not Recovered/Not Resolved]
  - Hernia [Unknown]
  - Pain [Not Recovered/Not Resolved]
  - Skin discomfort [Not Recovered/Not Resolved]

NARRATIVE: CASE EVENT DATE: 20241001
